FAERS Safety Report 5568767-7 (Version None)
Quarter: 2007Q4

REPORT INFORMATION
  Report Type: 
  Country: None (occurrence: None)
  Receive Date: 20071220
  Receipt Date: 20070227
  Transmission Date: 20080405
  Serious: No
  Sender: FDA-Public Use
  Company Number: A0632626A

PATIENT
  Age: 79 Year
  Sex: Male

DRUGS (4)
  1. AVODART [Suspect]
     Dosage: .5MG PER DAY
     Route: 048
     Dates: start: 20050301
  2. FLOMAX [Concomitant]
     Route: 048
  3. SAW PALMETTO [Concomitant]
  4. DYAZIDE [Concomitant]

REACTIONS (5)
  - BREAST ENLARGEMENT [None]
  - BREAST MICROCALCIFICATION [None]
  - BREAST PAIN [None]
  - GYNAECOMASTIA [None]
  - PRURITUS [None]
